FAERS Safety Report 22835797 (Version 4)
Quarter: 2024Q2

REPORT INFORMATION
  Report Type: Spontaneous
  Country: PT (occurrence: PT)
  Receive Date: 20230818
  Receipt Date: 20240607
  Transmission Date: 20240715
  Serious: Yes (Hospitalization, Other)
  Sender: FDA-Public Use
  Company Number: PT-UCBSA-2023037653

PATIENT
  Age: 6 Year
  Sex: Male

DRUGS (29)
  1. DIAZEPAM [Suspect]
     Active Substance: DIAZEPAM
     Indication: Seizure
     Dosage: UNK
     Route: 042
  2. DIAZEPAM [Suspect]
     Active Substance: DIAZEPAM
     Indication: Febrile infection-related epilepsy syndrome
  3. LACOSAMIDE [Suspect]
     Active Substance: LACOSAMIDE
     Indication: Seizure
     Dosage: 5 MILLIGRAM/KILOGRAM, ONCE DAILY (QD)
     Route: 065
  4. LACOSAMIDE [Suspect]
     Active Substance: LACOSAMIDE
     Indication: Febrile infection-related epilepsy syndrome
  5. LEVETIRACETAM [Suspect]
     Active Substance: LEVETIRACETAM
     Indication: Seizure
     Dosage: 30 MILLIGRAM/KILOGRAM, ONCE DAILY (QD)
     Route: 065
  6. LEVETIRACETAM [Suspect]
     Active Substance: LEVETIRACETAM
     Indication: Febrile infection-related epilepsy syndrome
  7. MIDAZOLAM [Suspect]
     Active Substance: MIDAZOLAM
     Indication: Seizure
     Dosage: UNK
     Route: 065
  8. MIDAZOLAM [Suspect]
     Active Substance: MIDAZOLAM
     Indication: Febrile infection-related epilepsy syndrome
  9. PHENYTOIN [Suspect]
     Active Substance: PHENYTOIN
     Indication: Seizure
     Dosage: 10 MILLIGRAM/KILOGRAM, ONCE DAILY (QD)
     Route: 065
  10. PHENYTOIN [Suspect]
     Active Substance: PHENYTOIN
     Indication: Status epilepticus
  11. VALPROIC ACID [Suspect]
     Active Substance: VALPROIC ACID
     Indication: Seizure
     Dosage: 40 MILLIGRAM/KILOGRAM, ONCE DAILY (QD)
     Route: 065
  12. VALPROIC ACID [Suspect]
     Active Substance: VALPROIC ACID
     Indication: Febrile infection-related epilepsy syndrome
  13. KETAMINE [Suspect]
     Active Substance: KETAMINE
     Indication: Seizure
     Dosage: UNK
     Route: 065
  14. KETAMINE [Suspect]
     Active Substance: KETAMINE
     Indication: Febrile infection-related epilepsy syndrome
  15. PERAMPANEL [Suspect]
     Active Substance: PERAMPANEL
     Indication: Seizure
     Dosage: 4 MILLIGRAM, ONCE DAILY (QD)
     Route: 065
  16. PERAMPANEL [Suspect]
     Active Substance: PERAMPANEL
     Indication: Febrile infection-related epilepsy syndrome
  17. PROPOFOL [Suspect]
     Active Substance: PROPOFOL
     Indication: Seizure
     Dosage: UNK
     Route: 040
  18. PROPOFOL [Suspect]
     Active Substance: PROPOFOL
     Indication: Febrile infection-related epilepsy syndrome
  19. ACYCLOVIR [Concomitant]
     Active Substance: ACYCLOVIR
     Indication: Antibiotic therapy
     Dosage: UNK
     Route: 042
  20. ANAKINRA [Concomitant]
     Active Substance: ANAKINRA
     Indication: Febrile infection-related epilepsy syndrome
     Dosage: 4 MILLIGRAM/KILOGRAM, ONCE DAILY (QD), STARTING ON DAY 17
     Route: 058
  21. CANNABIDIOL [Concomitant]
     Active Substance: CANNABIDIOL
     Indication: Febrile infection-related epilepsy syndrome
     Dosage: 20 MILLIGRAM/KILOGRAM, ONCE DAILY (QD)
     Route: 065
  22. CEFTRIAXONE [Concomitant]
     Active Substance: CEFTRIAXONE\CEFTRIAXONE SODIUM
     Indication: Antibiotic therapy
     Dosage: UNK
     Route: 065
  23. CIPROFLOXACIN [Concomitant]
     Active Substance: CIPROFLOXACIN
     Indication: Antibiotic therapy
     Dosage: UNK
     Route: 065
  24. CLINDAMYCIN [Concomitant]
     Active Substance: CLINDAMYCIN
     Indication: Antibiotic therapy
     Dosage: UNK
     Route: 065
  25. HUMAN IMMUNOGLOBULIN G [Concomitant]
     Active Substance: HUMAN IMMUNOGLOBULIN G
     Indication: Febrile infection-related epilepsy syndrome
     Dosage: 2 GRAM PER KILOGRAM DIVIDED BETWEEN DAYS 17 AND 18
     Route: 065
  26. Kd [Concomitant]
     Indication: Febrile infection-related epilepsy syndrome
     Dosage: UNK, STARTING ON DAY 10
  27. METHYLPREDNISOLONE [Concomitant]
     Active Substance: METHYLPREDNISOLONE
     Indication: Febrile infection-related epilepsy syndrome
     Dosage: 30 MILLIGRAM/KILOGRAM, ONCE DAILY (QD), FOR 5 DAYS, STARTING ON DAY
     Route: 065
  28. PYRIDOXINE [Concomitant]
     Active Substance: PYRIDOXINE
     Indication: Febrile infection-related epilepsy syndrome
     Dosage: 100 MILLIGRAM, ONCE A DAY (50 MILLIGRAM, 2X/DAY (BID), STARTING ON DAY 17)
     Route: 042
  29. THIOPENTAL [Concomitant]
     Active Substance: THIOPENTAL
     Indication: Febrile infection-related epilepsy syndrome
     Dosage: UNK, DAYS 14 TO 16
     Route: 065

REACTIONS (5)
  - Status epilepticus [Unknown]
  - Condition aggravated [Unknown]
  - Drug ineffective [Unknown]
  - Multiple-drug resistance [Unknown]
  - Off label use [Unknown]
